FAERS Safety Report 7421095-7 (Version None)
Quarter: 2011Q2

REPORT INFORMATION
  Report Type: 
  Country: None (occurrence: None)
  Receive Date: 20110418
  Receipt Date: 20110323
  Transmission Date: 20111010
  Serious: Yes (Hospitalization, Other)
  Sender: FDA-Public Use
  Company Number: US-BAYER-201033193NA

PATIENT
  Age: 17 Year
  Sex: Female
  Weight: 63.492 kg

DRUGS (2)
  1. PLAVIX [Concomitant]
     Dosage: 75 MG, UNK
  2. YAZ [Suspect]
     Indication: CONTRACEPTION
     Dosage: UNK
     Dates: start: 20070618, end: 20080831

REACTIONS (3)
  - PAIN [None]
  - CEREBROVASCULAR ACCIDENT [None]
  - HEMIPARESIS [None]
